FAERS Safety Report 5812164-3 (Version None)
Quarter: 2008Q3

REPORT INFORMATION
  Report Type: 
  Country: None (occurrence: None)
  Receive Date: 20080716
  Receipt Date: 20080714
  Transmission Date: 20090109
  Serious: Yes (Hospitalization)
  Sender: FDA-Public Use
  Company Number: DE-WYE-G01858508

PATIENT
  Sex: Male
  Weight: 75 kg

DRUGS (3)
  1. TREVILOR [Suspect]
     Dosage: 10 TABLETS/CAPSULES (OVERDOSE AMOUNT 375 MG)
     Route: 048
     Dates: start: 20080712, end: 20080712
  2. ALCOHOL [Suspect]
     Dosage: 1 BOTTLE OF SPARKLING WINE
     Route: 048
     Dates: start: 20080712, end: 20080712
  3. CITALOPRAM HYDROBROMIDE [Suspect]
     Dosage: MAX. 40 TABLETS (OVERDOSE AMOUNT MAX. 800 MG)
     Route: 048
     Dates: start: 20080712, end: 20080712

REACTIONS (4)
  - FATIGUE [None]
  - GASTROINTESTINAL SOUNDS ABNORMAL [None]
  - INTENTIONAL OVERDOSE [None]
  - SUICIDE ATTEMPT [None]
